FAERS Safety Report 19079286 (Version 3)
Quarter: 2021Q2

REPORT INFORMATION
  Report Type: Report from Study
  Country: FR (occurrence: FR)
  Receive Date: 20210331
  Receipt Date: 20210512
  Transmission Date: 20210717
  Serious: Yes (Life-Threatening, Hospitalization, Other)
  Sender: FDA-Public Use
  Company Number: FR-EXELIXIS-XL18420031398

PATIENT

DRUGS (16)
  1. XL184 [Suspect]
     Active Substance: CABOZANTINIB
     Dosage: 20 MG, QD
     Route: 048
     Dates: start: 20210316, end: 20210429
  2. NEFOPAM [Concomitant]
     Active Substance: NEFOPAM
  3. LIDOCAINE. [Concomitant]
     Active Substance: LIDOCAINE
  4. METFORMIN [Concomitant]
     Active Substance: METFORMIN HYDROCHLORIDE
  5. FUROSEMIDE. [Concomitant]
     Active Substance: FUROSEMIDE
  6. POTASSIUM [Concomitant]
     Active Substance: POTASSIUM
  7. ECONAZOLE NITRATE. [Concomitant]
     Active Substance: ECONAZOLE NITRATE
  8. LOPERAMIDE [Concomitant]
     Active Substance: LOPERAMIDE
  9. RIFAXIMIN. [Concomitant]
     Active Substance: RIFAXIMIN
  10. XL184 [Suspect]
     Active Substance: CABOZANTINIB
     Dosage: 40 MG, QD
     Route: 048
     Dates: start: 20210205, end: 20210315
  11. FOLIC ACID. [Concomitant]
     Active Substance: FOLIC ACID
  12. XL184 [Suspect]
     Active Substance: CABOZANTINIB
     Indication: HEPATOCELLULAR CARCINOMA
     Dosage: 60 MG, QD (EVERY 24 HRS)
     Route: 048
     Dates: start: 20200504, end: 20200602
  13. SPIRONOLACTONE. [Concomitant]
     Active Substance: SPIRONOLACTONE
  14. BETAMETHASONE. [Concomitant]
     Active Substance: BETAMETHASONE
  15. LACTULOSE. [Concomitant]
     Active Substance: LACTULOSE
  16. MAGNESIUM [Concomitant]
     Active Substance: MAGNESIUM

REACTIONS (4)
  - Skin ulcer [Recovered/Resolved]
  - Fall [Not Recovered/Not Resolved]
  - Ischaemic stroke [Not Recovered/Not Resolved]
  - Diarrhoea [Recovered/Resolved]

NARRATIVE: CASE EVENT DATE: 20200504
